FAERS Safety Report 8564994-5 (Version None)
Quarter: 2012Q3

REPORT INFORMATION
  Report Type: 
  Country: None (occurrence: None)
  Receive Date: 20120803
  Receipt Date: 20120730
  Transmission Date: 20120928
  Serious: No
  Sender: FDA-Public Use
  Company Number: US-PFIZER INC-2012184734

PATIENT
  Sex: Female
  Weight: 58 kg

DRUGS (2)
  1. LYRICA [Suspect]
     Indication: FIBROMYALGIA
     Dosage: 100 MG, 4X/DAY
     Route: 048
     Dates: start: 20090101
  2. VICODIN [Concomitant]
     Indication: PAIN
     Dosage: 500/5 MG, UNK

REACTIONS (2)
  - MALAISE [None]
  - FALL [None]
